FAERS Safety Report 6306875-3 (Version None)
Quarter: 2009Q3

REPORT INFORMATION
  Report Type: 
  Country: None (occurrence: None)
  Receive Date: 20090810
  Receipt Date: 20090805
  Transmission Date: 20100115
  Serious: Yes (Life-Threatening)
  Sender: FDA-Public Use
  Company Number: PL-EBEWE-1085CARBO09

PATIENT
  Age: 50 Year
  Sex: Female

DRUGS (3)
  1. CARBOPLATIN [Suspect]
     Indication: OVARIAN CANCER
     Dosage: 680MG/DAY, IV
     Route: 042
     Dates: start: 20090724
  2. CARBOPLATIN [Suspect]
  3. CARBOPLATIN [Suspect]

REACTIONS (5)
  - CYANOSIS [None]
  - DYSPNOEA [None]
  - NONSPECIFIC REACTION [None]
  - SYNCOPE [None]
  - TACHYCARDIA [None]
